FAERS Safety Report 6668197-0 (Version None)
Quarter: 2010Q2

REPORT INFORMATION
  Report Type: 
  Country: None (occurrence: None)
  Receive Date: 20100405
  Receipt Date: 20100405
  Transmission Date: 20101027
  Serious: Yes (Hospitalization)
  Sender: FDA-Public Use
  Company Number: None

PATIENT
  Age: 64 Year
  Sex: Male
  Weight: 97.3 kg

DRUGS (4)
  1. SIMVASTATIN [Suspect]
     Indication: TRANSIENT ISCHAEMIC ATTACK
     Dosage: 20 MG EVERY DAY PO
     Route: 048
     Dates: start: 20100204, end: 20100223
  2. QUETIAPINE [Suspect]
     Indication: BIPOLAR DISORDER
     Dosage: 100 MG AT BEDTIME PO
     Route: 048
     Dates: start: 20090225, end: 20100223
  3. QUETIAPINE [Suspect]
     Indication: DELUSION
     Dosage: 100 MG AT BEDTIME PO
     Route: 048
     Dates: start: 20090225, end: 20100223
  4. QUETIAPINE [Suspect]
     Indication: MANIA
     Dosage: 100 MG AT BEDTIME PO
     Route: 048
     Dates: start: 20090225, end: 20100223

REACTIONS (6)
  - BACK PAIN [None]
  - CONDITION AGGRAVATED [None]
  - DELUSION [None]
  - HYPERKALAEMIA [None]
  - RENAL FAILURE ACUTE [None]
  - RHABDOMYOLYSIS [None]
